FAERS Safety Report 6128937-6 (Version None)
Quarter: 2009Q1

REPORT INFORMATION
  Report Type: 
  Country: None (occurrence: None)
  Receive Date: 20090324
  Receipt Date: 20090312
  Transmission Date: 20090719
  Serious: Yes (Other)
  Sender: FDA-Public Use
  Company Number: PHHY2009GB09327

PATIENT
  Sex: Male
  Weight: 108.6 kg

DRUGS (1)
  1. CLOZARIL [Suspect]
     Indication: SCHIZOPHRENIA
     Dosage: UNK
     Dates: start: 20040407

REACTIONS (3)
  - HYPERTONIC BLADDER [None]
  - NOCTURIA [None]
  - URETHRAL DILATION PROCEDURE [None]
